FAERS Safety Report 5822513-8 (Version None)
Quarter: 2008Q3

REPORT INFORMATION
  Report Type: 
  Country: None (occurrence: None)
  Receive Date: 20080725
  Receipt Date: 20071217
  Transmission Date: 20090109
  Serious: No
  Sender: FDA-Public Use
  Company Number: US-AMGEN-KDL257204

PATIENT
  Sex: Male

DRUGS (2)
  1. EPOGEN [Suspect]
     Indication: RENAL FAILURE CHRONIC
     Dates: start: 20060101
  2. FERRLECIT [Concomitant]

REACTIONS (2)
  - BLOOD IRON INCREASED [None]
  - HAEMOGLOBIN DECREASED [None]
